FAERS Safety Report 6015882-X (Version None)
Quarter: 2008Q4

REPORT INFORMATION
  Report Type: 
  Country: None (occurrence: None)
  Receive Date: 20081222
  Receipt Date: 20081219
  Transmission Date: 20090506
  Serious: Yes (Death, Hospitalization)
  Sender: FDA-Public Use
  Company Number: A0761196A

PATIENT
  Age: 72 Year
  Sex: Female
  Weight: 82.7 kg

DRUGS (5)
  1. AVANDIA [Suspect]
     Indication: TYPE 2 DIABETES MELLITUS
     Dosage: 8MG PER DAY
     Route: 048
     Dates: start: 20010201, end: 20010806
  2. GLUCOPHAGE [Concomitant]
  3. GLUCOTROL [Concomitant]
  4. ALTACE [Concomitant]
  5. PREMARIN [Concomitant]

REACTIONS (3)
  - CARDIAC FAILURE CONGESTIVE [None]
  - CEREBROVASCULAR ACCIDENT [None]
  - DEATH [None]
